FAERS Safety Report 13761282 (Version 1)
Quarter: 2017Q3

REPORT INFORMATION
  Report Type: Spontaneous
  Country: ES (occurrence: ES)
  Receive Date: 20170717
  Receipt Date: 20170717
  Transmission Date: 20171127
  Serious: Yes (Other)
  Sender: FDA-Public Use
  Company Number: PHHY2017ES101066

PATIENT
  Age: 27 Year
  Sex: Male

DRUGS (3)
  1. ACETYLSALICYLIC ACID [Suspect]
     Active Substance: ASPIRIN
     Indication: CATARRH
     Route: 065
  2. PHENYLEPHRINE [Suspect]
     Active Substance: PHENYLEPHRINE\PHENYLEPHRINE HYDROCHLORIDE
     Indication: CATARRH
     Route: 065
  3. CHLORPHENAMINE [Suspect]
     Active Substance: CHLORPHENIRAMINE MALEATE
     Indication: CATARRH
     Route: 065

REACTIONS (5)
  - Cheilitis [Unknown]
  - Malaise [Recovered/Resolved]
  - Angioedema [Recovered/Resolved]
  - Idiosyncratic drug reaction [Unknown]
  - Lip swelling [Recovered/Resolved]
